FAERS Safety Report 5583708-4 (Version None)
Quarter: 2008Q1

REPORT INFORMATION
  Report Type: 
  Country: None (occurrence: None)
  Receive Date: 20080103
  Receipt Date: 20071226
  Transmission Date: 20080703
  Serious: Yes (Other)
  Sender: FDA-Public Use
  Company Number: CHPA2007US14452

PATIENT
  Age: 23 Year
  Sex: Female
  Weight: 68 kg

DRUGS (1)
  1. EX-LAX MAX STR LAX PILLS SENNA (NCH)(SENNA GLYCOSIDES (CA SALTS OF PUR [Suspect]
     Dosage: SEVERAL BOXES WITHIN A 30 DAY PERIOD, ORAL
     Route: 048

REACTIONS (2)
  - DRUG ABUSER [None]
  - OVERDOSE [None]
